FAERS Safety Report 22062747 (Version 2)
Quarter: 2023Q2

REPORT INFORMATION
  Report Type: Report from Study
  Country: BR (occurrence: BR)
  Receive Date: 20230306
  Receipt Date: 20230413
  Transmission Date: 20230721
  Serious: Yes (Hospitalization, Other)
  Sender: FDA-Public Use
  Company Number: BR-CELLTRION INC.-2023BR004549

PATIENT

DRUGS (6)
  1. INFLIXIMAB [Suspect]
     Active Substance: INFLIXIMAB
     Indication: Crohn^s disease
     Dosage: 4 AMPOULES EVERY 4 WEEKS
     Route: 042
     Dates: start: 202211
  2. METHOTREXATE [Concomitant]
     Active Substance: METHOTREXATE
     Indication: Arthritis
     Dosage: 15 MG PER WEEK, INJECTABLE/ STARTED: 4 YEARS AGO
  3. PHENOBARBITAL [Concomitant]
     Active Substance: PHENOBARBITAL
     Indication: Seizure
     Dosage: 1 CAPSULE PER DAY, QD
     Route: 048
     Dates: start: 1998
  4. VENLAFAXINE [Concomitant]
     Active Substance: VENLAFAXINE HYDROCHLORIDE
     Indication: Depression
     Dosage: 1.5 CAPSULE PER DAY
     Route: 048
     Dates: start: 2000
  5. ASPIRIN [Concomitant]
     Active Substance: ASPIRIN
     Dosage: 1 CAPSULE PER DAY, QD
     Route: 048
     Dates: start: 2022
  6. ROSUVASTATIN [Concomitant]
     Active Substance: ROSUVASTATIN
     Dosage: 1 CAPSULE PER DAY, QD
     Route: 048
     Dates: start: 2022

REACTIONS (3)
  - Catheter placement [Unknown]
  - Intentional dose omission [Unknown]
  - Off label use [Unknown]

NARRATIVE: CASE EVENT DATE: 20230201
